FAERS Safety Report 21302008 (Version 1)
Quarter: 2022Q3

REPORT INFORMATION
  Report Type: Report from Study
  Country: US (occurrence: US)
  Receive Date: 20220907
  Receipt Date: 20220907
  Transmission Date: 20221027
  Serious: Yes (Other)
  Sender: FDA-Public Use
  Company Number: US-GLAXOSMITHKLINE-US2022GSK127011

PATIENT

DRUGS (3)
  1. BELANTAMAB MAFODOTIN [Suspect]
     Active Substance: BELANTAMAB MAFODOTIN
     Indication: Plasma cell myeloma
     Dosage: 2.5 MG/KG, Q6W
     Route: 042
     Dates: start: 20220608, end: 20220720
  2. CYCLOPHOSPHAMIDE [Suspect]
     Active Substance: CYCLOPHOSPHAMIDE
     Indication: Plasma cell myeloma
     Dosage: 300 MG FOR 3 WEEK
     Route: 048
     Dates: start: 20220608, end: 20220720
  3. DEXAMETHASONE [Suspect]
     Active Substance: DEXAMETHASONE
     Indication: Plasma cell myeloma
     Dosage: 40 MG FOR 3 WEEK
     Route: 048
     Dates: start: 20220608, end: 20220720

REACTIONS (1)
  - Ocular toxicity [Not Recovered/Not Resolved]

NARRATIVE: CASE EVENT DATE: 20220810
